FAERS Safety Report 8836001 (Version 1)
Quarter: 2012Q4

REPORT INFORMATION
  Report Type: 
  Country: US (occurrence: US)
  Receive Date: 20121011
  Receipt Date: 20121011
  Transmission Date: 20130627
  Serious: No
  Sender: FDA-Public Use
  Company Number: US-PFIZER INC-2012247974

PATIENT
  Age: 78 Year
  Sex: Female

DRUGS (2)
  1. SUTENT [Suspect]
     Indication: RENAL CANCER
     Dosage: 12.5 mg, 3x/day
     Route: 048
     Dates: start: 201003, end: 201011
  2. SUTENT [Suspect]
     Dosage: 12.5 mg, 3x/day
     Route: 048
     Dates: start: 20120618

REACTIONS (2)
  - Disease progression [Unknown]
  - Renal cancer [Unknown]
